FAERS Safety Report 8221905-X (Version None)
Quarter: 2012Q1

REPORT INFORMATION
  Report Type: 
  Country: None (occurrence: None)
  Receive Date: 20120320
  Receipt Date: 20120308
  Transmission Date: 20120608
  Serious: Yes (Hospitalization)
  Sender: FDA-Public Use
  Company Number: AU-JNJFOC-20111210196

PATIENT
  Sex: Male

DRUGS (7)
  1. SULFASALAZINE [Concomitant]
     Route: 065
  2. REMICADE [Suspect]
     Route: 042
     Dates: start: 20111229
  3. SULFASALAZINE [Concomitant]
     Dosage: 2 TABLETS TWICE A DAY
     Route: 065
  4. REMICADE [Suspect]
     Route: 042
     Dates: start: 20111017
  5. SULFASALAZINE [Concomitant]
     Dosage: 3 TABS TWICE A DAY
     Route: 065
  6. REMICADE [Suspect]
     Indication: CROHN'S DISEASE
     Route: 042
     Dates: start: 20120224
  7. REMICADE [Suspect]
     Route: 042
     Dates: start: 20090602

REACTIONS (9)
  - FREQUENT BOWEL MOVEMENTS [None]
  - SKIN ULCER [None]
  - HYPOAESTHESIA [None]
  - FATIGUE [None]
  - OEDEMA PERIPHERAL [None]
  - DRUG RESISTANCE [None]
  - CELLULITIS [None]
  - FISTULA [None]
  - ACNE [None]
